FAERS Safety Report 22918562 (Version 2)
Quarter: 2023Q4

REPORT INFORMATION
  Report Type: Spontaneous
  Country: US (occurrence: US)
  Receive Date: 20230907
  Receipt Date: 20231204
  Transmission Date: 20240109
  Serious: Yes (Other)
  Sender: FDA-Public Use
  Company Number: US-PFIZER INC-PV202300066722

PATIENT
  Age: 18 Year
  Sex: Male

DRUGS (2)
  1. BENEFIX [Suspect]
     Active Substance: COAGULATION FACTOR IX RECOMBINANT HUMAN\ISOPROPYL ALCOHOL
     Indication: Haemorrhage
     Dosage: 6800 IU (+/-10%) = 100 IU / KG X 1 DAILY ON DEMAND FOR A BLEED
  2. BENEFIX [Suspect]
     Active Substance: COAGULATION FACTOR IX RECOMBINANT HUMAN\ISOPROPYL ALCOHOL
     Dosage: 7300 IU (+/-10%) = 100 IU / KG X 1 DAILY ON DEMAND FOR A BLEED

REACTIONS (1)
  - Haemorrhage [Unknown]
